FAERS Safety Report 5193237-8 (Version None)
Quarter: 2006Q4

REPORT INFORMATION
  Report Type: 
  Country: None (occurrence: None)
  Receive Date: 20061228
  Receipt Date: 20060725
  Transmission Date: 20070319
  Serious: No
  Sender: FDA-Public Use
  Company Number: US-GLAXOSMITHKLINE-A0613535A

PATIENT
  Age: 85 Year
  Sex: Male

DRUGS (8)
  1. AVODART [Suspect]
     Indication: BENIGN PROSTATIC HYPERPLASIA
     Dosage: .5MG PER DAY
     Route: 048
  2. ZAROXOLYN [Concomitant]
  3. FUROSEMIDE [Concomitant]
  4. POTASSIUM ACETATE [Concomitant]
  5. ASPIRIN [Concomitant]
  6. ZOCOR [Concomitant]
  7. NIASPAN [Concomitant]
  8. NITROGLYCERIN [Concomitant]

REACTIONS (1)
  - DRUG INEFFECTIVE [None]
